FAERS Safety Report 9091076 (Version 1)
Quarter: 2013Q1

REPORT INFORMATION
  Report Type: Report from Study
  Country: US (occurrence: US)
  Receive Date: 20130218
  Receipt Date: 20130218
  Transmission Date: 20140127
  Serious: No
  Sender: FDA-Public Use
  Company Number: US-ABBOTT-12P-163-0946499-00

PATIENT
  Sex: Male
  Weight: 121.67 kg

DRUGS (3)
  1. SIMCOR 1000MG/20MG [Suspect]
     Indication: HIGH DENSITY LIPOPROTEIN DECREASED
     Dosage: 1000/20MG
  2. LOTREL [Concomitant]
     Indication: HYPERTENSION
  3. UNKNOWN GOUT MEDICATION [Concomitant]
     Indication: GOUT

REACTIONS (2)
  - Flushing [Recovered/Resolved]
  - Blood uric acid increased [Unknown]
